FAERS Safety Report 5683462-1 (Version None)
Quarter: 2008Q1

REPORT INFORMATION
  Report Type: 
  Country: None (occurrence: None)
  Receive Date: 20080326
  Receipt Date: 20080311
  Transmission Date: 20080703
  Serious: Yes (Death, Other)
  Sender: FDA-Public Use
  Company Number: MEDI-0006608

PATIENT
  Age: 8 Month
  Sex: Female
  Weight: 1.65 kg

DRUGS (1)
  1. SYNAGIS [Suspect]
     Indication: ANTIVIRAL PROPHYLAXIS
     Dosage: 15 UG/KG, INTRAMUSCULAR
     Route: 030
     Dates: start: 20080226, end: 20080226

REACTIONS (1)
  - CONVULSION [None]
